FAERS Safety Report 21865378 (Version 10)
Quarter: 2024Q2

REPORT INFORMATION
  Report Type: Spontaneous
  Country: JP (occurrence: JP)
  Receive Date: 20230116
  Receipt Date: 20240522
  Transmission Date: 20240716
  Serious: Yes (Hospitalization, Other)
  Sender: FDA-Public Use
  Company Number: JP-ONO-2023JP000638

PATIENT
  Age: 75 Year
  Sex: Male

DRUGS (2)
  1. YERVOY [Suspect]
     Active Substance: IPILIMUMAB
     Indication: Malignant melanoma
     Route: 041
  2. OPDIVO [Suspect]
     Active Substance: NIVOLUMAB
     Indication: Malignant melanoma
     Route: 041

REACTIONS (8)
  - Haematuria [Unknown]
  - Proteinuria [Unknown]
  - Immune-mediated enterocolitis [Recovering/Resolving]
  - Immune-mediated hepatitis [Recovering/Resolving]
  - Immune-mediated pancreatitis [Recovering/Resolving]
  - Immune-mediated nephritis [Recovering/Resolving]
  - Pancreatic enzymes increased [Recovering/Resolving]
  - Immune-mediated lung disease [Recovering/Resolving]
